FAERS Safety Report 21882064 (Version 1)
Quarter: 2023Q1

REPORT INFORMATION
  Report Type: Spontaneous
  Country: US (occurrence: US)
  Receive Date: 20230119
  Receipt Date: 20230119
  Transmission Date: 20230418
  Serious: No
  Sender: FDA-Public Use
  Company Number: US-SA-SAC20230118000607

PATIENT
  Sex: Female
  Weight: 49.8 kg

DRUGS (8)
  1. DUPIXENT [Suspect]
     Active Substance: DUPILUMAB
     Indication: Dermatitis allergic
     Dosage: 300 MG, QOW
     Route: 058
  2. DUPIXENT [Suspect]
     Active Substance: DUPILUMAB
     Indication: Dermatitis atopic
     Dosage: 300 MG, Q10D
     Route: 058
  3. PIMECROLIMUS [Concomitant]
     Active Substance: PIMECROLIMUS
  4. LATUDA [Concomitant]
     Active Substance: LURASIDONE HYDROCHLORIDE
     Indication: Bipolar disorder
  5. CLONAZEPAM [Concomitant]
     Active Substance: CLONAZEPAM
     Indication: Bipolar disorder
  6. METRONIDAZOLE [Concomitant]
     Active Substance: METRONIDAZOLE
  7. LAMOTRIGINE [Concomitant]
     Active Substance: LAMOTRIGINE
     Indication: Bipolar disorder
  8. CLONIDINE [Concomitant]
     Active Substance: CLONIDINE

REACTIONS (3)
  - Dermatitis atopic [Unknown]
  - Therapeutic response shortened [Unknown]
  - Off label use [Unknown]
